FAERS Safety Report 7789339-X (Version None)
Quarter: 2011Q3

REPORT INFORMATION
  Report Type: 
  Country: None (occurrence: None)
  Receive Date: 20110930
  Receipt Date: 20110822
  Transmission Date: 20111222
  Serious: Yes (Hospitalization)
  Sender: FDA-Public Use
  Company Number: FR-GLAXOSMITHKLINE-B0660906A

PATIENT
  Sex: Male

DRUGS (6)
  1. ACETAMINOPHEN [Concomitant]
     Indication: PAIN
  2. THIOCOLCHICOSIDE [Suspect]
     Indication: PRODUCT USED FOR UNKNOWN INDICATION
     Dosage: 4MG TWICE PER DAY
     Route: 048
     Dates: start: 20100423, end: 20100428
  3. ALLOPURINOL [Concomitant]
     Indication: HYPERURICAEMIA
     Dosage: 200MG PER DAY
     Route: 048
  4. NABUMETONE [Suspect]
     Indication: SCIATICA
     Dosage: 1G TWICE PER DAY
     Route: 048
     Dates: start: 20100423, end: 20100429
  5. ACETAMINOPHEN [Suspect]
     Indication: PRODUCT USED FOR UNKNOWN INDICATION
     Route: 048
     Dates: start: 20100423, end: 20100430
  6. MIOREL [Concomitant]
     Indication: MYALGIA
     Route: 048
     Dates: start: 20100423, end: 20100429

REACTIONS (5)
  - SKIN NECROSIS [None]
  - WOUND [None]
  - PURPURA NON-THROMBOCYTOPENIC [None]
  - OEDEMA PERIPHERAL [None]
  - INFLAMMATION [None]
